FAERS Safety Report 7777158-X (Version None)
Quarter: 2011Q3

REPORT INFORMATION
  Report Type: 
  Country: None (occurrence: None)
  Receive Date: 20110926
  Receipt Date: 20110916
  Transmission Date: 20111222
  Serious: Yes (Other)
  Sender: FDA-Public Use
  Company Number: US-AMGEN-USASP2011045658

PATIENT
  Age: 50 Year
  Weight: 74.83 kg

DRUGS (4)
  1. ENBREL [Suspect]
     Indication: PRODUCT USED FOR UNKNOWN INDICATION
     Dosage: UNK
  2. PAROXETINA [Concomitant]
     Indication: DEPRESSION
     Dosage: 20 MG, UNK
     Route: 048
  3. HUMIRA [Concomitant]
     Indication: PSORIASIS
     Dosage: 40 MG, Q2WK
     Route: 058
     Dates: start: 20100101, end: 20110101
  4. HUMIRA [Concomitant]
     Dosage: UNK
     Dates: start: 20110401, end: 20110819

REACTIONS (4)
  - PAIN [None]
  - BLOOD URINE PRESENT [None]
  - PSORIASIS [None]
  - DRUG INEFFECTIVE [None]
